FAERS Safety Report 4283005-3 (Version None)
Quarter: 2004Q1

REPORT INFORMATION
  Report Type: 
  Country: None (occurrence: None)
  Receive Date: 20040129
  Receipt Date: 20040116
  Transmission Date: 20041129
  Serious: Yes (Death)
  Sender: FDA-Public Use
  Company Number: US-JNJFOC-20040103284

PATIENT
  Age: 89 Year
  Sex: Female

DRUGS (11)
  1. INFLIXIMAB (INFLIXIMAB, RECOMBINANT) LYOPHILIZED POWDER [Suspect]
     Indication: RHEUMATOID ARTHRITIS
     Dosage: INTRAVENOUS
     Route: 042
     Dates: start: 20010228, end: 20011101
  2. AZULFADINE (TABLETS) SULFASALAZINE [Concomitant]
  3. CALCIUM (TABLETS) [Concomitant]
  4. COZAAR [Concomitant]
  5. DARVOCET (PROPACET) [Concomitant]
  6. FOSAMAX [Concomitant]
  7. DURAGESIC [Concomitant]
  8. ALBUTEROL [Concomitant]
  9. FLOVENT [Concomitant]
  10. LASIX [Concomitant]
  11. MEDROL [Concomitant]

REACTIONS (1)
  - DEATH [None]
